FAERS Safety Report 6045342-1 (Version None)
Quarter: 2009Q1

REPORT INFORMATION
  Report Type: 
  Country: None (occurrence: None)
  Receive Date: 20090121
  Receipt Date: 20090108
  Transmission Date: 20090719
  Serious: Yes (Hospitalization)
  Sender: FDA-Public Use
  Company Number: AR-AMGEN-US328810

PATIENT
  Sex: Female

DRUGS (3)
  1. ENBREL [Suspect]
     Indication: RHEUMATOID ARTHRITIS
     Route: 058
     Dates: start: 20050422
  2. CORTICOSTEROIDS [Concomitant]
  3. UNSPECIFIED MEDICATION [Concomitant]

REACTIONS (4)
  - CONTUSION [None]
  - MUSCULAR WEAKNESS [None]
  - POLYMENORRHOEA [None]
  - RED BLOOD CELL SEDIMENTATION RATE INCREASED [None]
